FAERS Safety Report 5748908-9 (Version None)
Quarter: 2008Q2

REPORT INFORMATION
  Report Type: 
  Country: None (occurrence: None)
  Receive Date: 20080525
  Receipt Date: 20080523
  Transmission Date: 20081010
  Serious: Yes (Death)
  Sender: FDA-Public Use
  Company Number: ES-BAYER-200715649GDS

PATIENT
  Sex: Male

DRUGS (1)
  1. ACTIRA [Suspect]
     Indication: BRONCHITIS
     Dosage: TOTAL DAILY DOSE: 400 MG  UNIT DOSE: 400 MG
     Route: 048
     Dates: start: 20070901, end: 20070901

REACTIONS (2)
  - ANAPHYLACTIC SHOCK [None]
  - ASPHYXIA [None]
